FAERS Safety Report 9026378 (Version 1)
Quarter: 2013Q1

REPORT INFORMATION
  Report Type: Spontaneous
  Country: BR (occurrence: BR)
  Receive Date: 20130123
  Receipt Date: 20130123
  Transmission Date: 20140127
  Serious: Yes (Hospitalization)
  Sender: FDA-Public Use
  Company Number: PHHY2013BR005815

PATIENT
  Sex: 0

DRUGS (4)
  1. EXJADE [Suspect]
     Indication: IRON OVERLOAD
     Dosage: 3 DF, DAILY
     Dates: start: 20090202
  2. HYDREA [Concomitant]
     Indication: PAIN
     Dosage: 3 DF, DAILY
  3. FOLIC ACID [Concomitant]
     Indication: ANAEMIA
     Dosage: 500 MG, QD
  4. TYLEX                              /00116401/ [Concomitant]
     Dosage: UNK UKN, PRN

REACTIONS (2)
  - Arthralgia [Recovered/Resolved]
  - Joint swelling [Recovered/Resolved]
